FAERS Safety Report 7736535-3 (Version None)
Quarter: 2011Q3

REPORT INFORMATION
  Report Type: 
  Country: None (occurrence: None)
  Receive Date: 20110908
  Receipt Date: 20110902
  Transmission Date: 20111222
  Serious: Yes (Life-Threatening)
  Sender: FDA-Public Use
  Company Number: GB-SANOFI-AVENTIS-2011SA057117

PATIENT
  Age: 64 Year
  Sex: Male
  Weight: 70 kg

DRUGS (9)
  1. OMEPRAZOLE [Concomitant]
  2. SIMVASTATIN [Concomitant]
  3. TAMSULOSIN HCL [Concomitant]
  4. AMLODIPINE BESYLATE [Concomitant]
  5. BENDROFLUMETHIAZIDE [Concomitant]
  6. NAPROXEN [Concomitant]
  7. PERINDOPRIL [Concomitant]
  8. LEFLUNOMIDE [Suspect]
     Indication: RHEUMATOID ARTHRITIS
     Route: 048
     Dates: start: 20110707
  9. PREDNISOLONE [Concomitant]

REACTIONS (1)
  - ISCHAEMIC STROKE [None]
